FAERS Safety Report 9393870 (Version 3)
Quarter: 2013Q3

REPORT INFORMATION
  Report Type: Spontaneous
  Country: US (occurrence: US)
  Receive Date: 20130710
  Receipt Date: 20130827
  Transmission Date: 20140515
  Serious: Yes (Other)
  Sender: FDA-Public Use
  Company Number: US-ELI_LILLY_AND_COMPANY-US201307000146

PATIENT
  Age: 51 Year
  Sex: Male

DRUGS (5)
  1. ZYPREXA RELPREVV [Suspect]
     Dosage: 300 MG, MONTHLY (1/M)
     Route: 030
     Dates: start: 20111007
  2. ZYPREXA RELPREVV [Suspect]
     Dosage: 300 MG, 2/M
     Route: 030
     Dates: start: 20130628
  3. COCAINE [Suspect]
  4. ALCOHOL [Suspect]
  5. AMLODIPINE                         /00972402/ [Concomitant]
     Dosage: 5 MG, UNK

REACTIONS (7)
  - Disorientation [Recovering/Resolving]
  - Hypertension [Recovering/Resolving]
  - Sedation [Recovering/Resolving]
  - Somnolence [Recovering/Resolving]
  - Heart rate increased [Recovering/Resolving]
  - Respiratory rate increased [Recovering/Resolving]
  - Depressed level of consciousness [Recovering/Resolving]
